FAERS Safety Report 5081144-0 (Version None)
Quarter: 2006Q3

REPORT INFORMATION
  Report Type: 
  Country: None (occurrence: None)
  Receive Date: 20060720
  Receipt Date: 20060322
  Transmission Date: 20061208
  Serious: Yes (Other)
  Sender: FDA-Public Use
  Company Number: 2006041645

PATIENT
  Sex: Female

DRUGS (2)
  1. CELEBREX [Suspect]
     Indication: POST PROCEDURAL OEDEMA
     Dosage: 200 MG (200 MG, 1 IN 1D)
  2. CELEBREX [Suspect]
     Indication: PROCEDURAL PAIN
     Dosage: 200 MG (200 MG, 1 IN 1D)

REACTIONS (2)
  - DEEP VEIN THROMBOSIS [None]
  - PAIN [None]
